FAERS Safety Report 18909671 (Version 1)
Quarter: 2021Q1

REPORT INFORMATION
  Report Type: Spontaneous
  Country: US (occurrence: US)
  Receive Date: 20210218
  Receipt Date: 20210218
  Transmission Date: 20210420
  Serious: Yes (Hospitalization)
  Sender: FDA-Public Use
  Company Number: None

PATIENT
  Age: 57 Year
  Sex: Female
  Weight: 87.8 kg

DRUGS (10)
  1. PREDNISONE S [Concomitant]
  2. CYANOCOBALAMIN. [Concomitant]
     Active Substance: CYANOCOBALAMIN
  3. BUDESONIDE. [Concomitant]
     Active Substance: BUDESONIDE
  4. OMEGA?3 ACIDS [Concomitant]
     Active Substance: OMEGA-3 FATTY ACIDS
  5. BIFIDOBACTERIUM?LACTOBACILLUS [Concomitant]
  6. MAGNESIUM OXIDE. [Concomitant]
     Active Substance: MAGNESIUM OXIDE
  7. LOSARTAN. [Concomitant]
     Active Substance: LOSARTAN
  8. METHOTREXATE. [Concomitant]
     Active Substance: METHOTREXATE
  9. ENTYVIO [Suspect]
     Active Substance: VEDOLIZUMAB
  10. CHOLECALCIFEROL [Concomitant]
     Active Substance: CHOLECALCIFEROL

REACTIONS (3)
  - Crohn^s disease [None]
  - Intestinal obstruction [None]
  - Hypokalaemia [None]

NARRATIVE: CASE EVENT DATE: 20181128
